FAERS Safety Report 13287889 (Version 11)
Quarter: 2018Q4

REPORT INFORMATION
  Report Type: Report from Study
  Country: NL (occurrence: NL)
  Receive Date: 20170302
  Receipt Date: 20181102
  Transmission Date: 20190204
  Serious: Yes (Death, Hospitalization)
  Sender: FDA-Public Use
  Company Number: NL-ROCHE-1899962

PATIENT
  Age: 61 Year
  Sex: Male
  Weight: 83.9 kg

DRUGS (4)
  1. ATEZOLIZUMAB. [Suspect]
     Active Substance: ATEZOLIZUMAB
     Indication: NEOPLASM
     Dosage: 19/JAN/2017 WAS THE MOST RECENT DOSE PRIOR TO THE EVENT; AT 11:35
     Route: 042
     Dates: start: 20170119, end: 20170119
  2. OXYCODON [Concomitant]
     Active Substance: OXYCODONE
     Indication: DYSPNOEA
     Route: 048
     Dates: start: 20170213
  3. CODEINE [Concomitant]
     Active Substance: CODEINE
     Route: 048
     Dates: start: 20161227
  4. ACETYLCYSTEIN [Concomitant]
     Active Substance: ACETYLCYSTEINE
     Indication: DYSPNOEA
     Route: 048
     Dates: start: 20170213

REACTIONS (1)
  - Myasthenia gravis [Fatal]

NARRATIVE: CASE EVENT DATE: 20170226
